FAERS Safety Report 10136382 (Version 1)
Quarter: 2014Q2

REPORT INFORMATION
  Report Type: Spontaneous
  Country: US (occurrence: None)
  Receive Date: 20140425
  Receipt Date: 20140425
  Transmission Date: 20141212
  Serious: Yes (Other)
  Sender: FDA-Public Use
  Company Number: UTC-047038

PATIENT
  Age: 72 Year
  Sex: Female

DRUGS (4)
  1. TYVASO [Suspect]
     Indication: PULMONARY ARTERIAL HYPERTENSION
     Dosage: 18-54 MICROGRAMS (4 IN 1 D)
     Dates: start: 20140401
  2. WARFARIN (WARFARIN) (UNKNOWN) [Concomitant]
  3. REVATIO (SILDENAFIL CITRATE) (UNKNOWN) [Concomitant]
  4. TRACLEER (BOSENTAN) (UNKNOWN) [Concomitant]

REACTIONS (7)
  - Oxygen saturation decreased [None]
  - Dizziness [None]
  - Oropharyngeal pain [None]
  - Dysphonia [None]
  - Nasal congestion [None]
  - Condition aggravated [None]
  - Pulmonary arterial hypertension [None]
